FAERS Safety Report 9312666 (Version 1)
Quarter: 2013Q2

REPORT INFORMATION
  Report Type: Spontaneous
  Country: US (occurrence: US)
  Receive Date: 20130528
  Receipt Date: 20130528
  Transmission Date: 20140414
  Serious: Yes (Other)
  Sender: FDA-Public Use
  Company Number: US-JNJFOC-20130511153

PATIENT
  Age: 55 Year
  Sex: Female
  Weight: 77.11 kg

DRUGS (3)
  1. ZYRTEC-D [Suspect]
     Route: 048
  2. ZYRTEC-D [Suspect]
     Indication: SEASONAL ALLERGY
     Route: 048
     Dates: start: 20130505
  3. WOMENS ONE-A DAY VITAMINS [Concomitant]
     Indication: ROUTINE HEALTH MAINTENANCE
     Route: 065

REACTIONS (2)
  - Urinary tract infection [Recovered/Resolved]
  - Insomnia [Recovered/Resolved]
